FAERS Safety Report 17157238 (Version 1)
Quarter: 2019Q4

REPORT INFORMATION
  Report Type: Spontaneous
  Country: US (occurrence: US)
  Receive Date: 20191121
  Receipt Date: 20191121
  Transmission Date: 20200122
  Serious: No
  Sender: FDA-Public Use
  Company Number: None

PATIENT
  Age: 51 Year
  Sex: Male

DRUGS (3)
  1. AUBAGIO [Concomitant]
     Active Substance: TERIFLUNOMIDE
     Route: 048
  2. LAMOTRIGINE. [Suspect]
     Active Substance: LAMOTRIGINE
  3. DALFAMPRIDINE ER 10MG [Suspect]
     Active Substance: DALFAMPRIDINE
     Dates: start: 201810

REACTIONS (4)
  - Dysphonia [None]
  - Insurance issue [None]
  - Therapy cessation [None]
  - Product substitution issue [None]

NARRATIVE: CASE EVENT DATE: 20191121
